FAERS Safety Report 9016774 (Version 1)
Quarter: 2013Q1

REPORT INFORMATION
  Report Type: Report from Study
  Country: US (occurrence: US)
  Receive Date: 20130116
  Receipt Date: 20130116
  Transmission Date: 20140127
  Serious: No
  Sender: FDA-Public Use
  Company Number: US-VERTEX PHARMACEUTICALS INC.-2013-000618

PATIENT
  Sex: Female
  Weight: 74 kg

DRUGS (7)
  1. VX-950 (TELAPREVIR) [Suspect]
     Indication: HEPATITIS C
     Dosage: 750 MG, TID
     Route: 048
     Dates: start: 201301
  2. PEGASYS [Suspect]
     Indication: HEPATITIS C
     Dosage: 180 ?G, QW
     Route: 058
     Dates: start: 201301
  3. RIBAVIRIN [Suspect]
     Indication: HEPATITIS C
     Dosage: 600 AM/400 PM
     Dates: start: 201301
  4. ASPIRIN EC [Concomitant]
  5. PREMARIN [Concomitant]
     Dosage: 1.25 MG, UNK
  6. CARVEDILOL 1A PHARMA [Concomitant]
     Dosage: 12.5 MG, UNK
  7. LISINOPRIL [Concomitant]
     Dosage: 40 MG, UNK

REACTIONS (4)
  - Insomnia [Unknown]
  - Stomatitis [Unknown]
  - Pruritus generalised [Unknown]
  - Nausea [Unknown]
